FAERS Safety Report 18525378 (Version 2)
Quarter: 2020Q4

REPORT INFORMATION
  Report Type: Spontaneous
  Country: AU (occurrence: AU)
  Receive Date: 20201120
  Receipt Date: 20201210
  Transmission Date: 20210114
  Serious: Yes (Other)
  Sender: FDA-Public Use
  Company Number: AU-ACCORD-207403

PATIENT
  Age: 50 Year
  Sex: Female
  Weight: 108 kg

DRUGS (8)
  1. IBUPROFEN. [Concomitant]
     Active Substance: IBUPROFEN
     Indication: PAIN
     Dosage: PAIN
  2. DEXAMETHASONE. [Concomitant]
     Active Substance: DEXAMETHASONE
     Indication: PROPHYLAXIS
     Dosage: ONCE A DAY,ON DAYS 1-3 OF TREATMENT CYCLE
     Dates: start: 20200929
  3. METOCLOPRAMIDE. [Concomitant]
     Active Substance: METOCLOPRAMIDE
     Indication: PROPHYLAXIS
     Dates: start: 20200929
  4. LOPERAMIDE [Concomitant]
     Active Substance: LOPERAMIDE
     Indication: PRODUCT USED FOR UNKNOWN INDICATION
     Dosage: ONCE A DAY,REQUIRED FOR CHEMO-DIARRHOEA FROM
     Dates: start: 20200929
  5. CAPECITABINE. [Concomitant]
     Active Substance: CAPECITABINE
     Indication: COLORECTAL CANCER
     Dosage: TWICE A DAY
     Dates: start: 20200929
  6. VALPROIC ACID. [Concomitant]
     Active Substance: VALPROIC ACID
     Indication: HEADACHE
     Dosage: ONCE A DAY AT NIGHT
  7. CETIRIZINE [Concomitant]
     Active Substance: CETIRIZINE HYDROCHLORIDE
     Dosage: ONGOING
  8. OXALIPLATIN ACCORD [Suspect]
     Active Substance: OXALIPLATIN
     Indication: COLORECTAL CANCER
     Dosage: STRENGTH: 100 MG/20ML,EVERY 3?WEEKS
     Route: 042
     Dates: start: 20200929

REACTIONS (8)
  - Dysaesthesia pharynx [Recovered/Resolved]
  - Dysphonia [Recovered/Resolved]
  - Sensation of foreign body [Recovered/Resolved]
  - Paraesthesia [Recovered/Resolved]
  - Eyelid ptosis [Unknown]
  - Tetany [Recovered/Resolved]
  - Pain in extremity [Recovered/Resolved]
  - Ataxia [Recovered/Resolved]

NARRATIVE: CASE EVENT DATE: 20201020
